FAERS Safety Report 21483342 (Version 1)
Quarter: 2022Q4

REPORT INFORMATION
  Report Type: Spontaneous
  Country: NL (occurrence: NL)
  Receive Date: 20221020
  Receipt Date: 20221020
  Transmission Date: 20230112
  Serious: Yes (Other)
  Sender: FDA-Public Use
  Company Number: NL-LRB-00831956

PATIENT
  Sex: Female
  Weight: 58 kg

DRUGS (2)
  1. OLANZAPINE [Suspect]
     Active Substance: OLANZAPINE
     Indication: Agitation
     Dosage: 10 NANOGRAM, ONCE A DAY(1X/DAY 1 PIECE)
     Route: 065
     Dates: start: 20220801
  2. LORAZEPAM [Suspect]
     Active Substance: LORAZEPAM
     Indication: Agitation
     Dosage: 1 MILLIGRAM, ONCE A DAY (1 DD 1 PIECE)
     Route: 065
     Dates: start: 20220715

REACTIONS (1)
  - Hallucination, visual [Unknown]
